FAERS Safety Report 17186743 (Version 5)
Quarter: 2022Q2

REPORT INFORMATION
  Report Type: Report from Study
  Country: US (occurrence: US)
  Receive Date: 20191220
  Receipt Date: 20220520
  Transmission Date: 20220721
  Serious: Yes (Other)
  Sender: FDA-Public Use
  Company Number: US-SHIRE-US201943766

PATIENT
  Age: 37 Year
  Sex: Female
  Weight: 93 kg

DRUGS (16)
  1. HUMAN IMMUNOGLOBULIN G [Suspect]
     Active Substance: HUMAN IMMUNOGLOBULIN G
     Indication: Primary immunodeficiency syndrome
     Dosage: 16 GRAM, 1/WEEK
     Route: 058
     Dates: start: 20180810
  2. HUMAN IMMUNOGLOBULIN G [Suspect]
     Active Substance: HUMAN IMMUNOGLOBULIN G
     Indication: Immunodeficiency common variable
     Dosage: 16 GRAM, 1/WEEK
     Route: 058
     Dates: start: 20181123
  3. HUMAN IMMUNOGLOBULIN G [Suspect]
     Active Substance: HUMAN IMMUNOGLOBULIN G
     Indication: Chronic sinusitis
     Dosage: 10 GRAM, 1/WEEK
     Route: 058
     Dates: start: 20180810
  4. ACETAMINOPHEN [Concomitant]
     Active Substance: ACETAMINOPHEN
     Route: 065
  5. DIPHENHYDRAMINE [Concomitant]
     Active Substance: DIPHENHYDRAMINE
     Route: 065
  6. EPINEPHRINE [Concomitant]
     Active Substance: EPINEPHRINE
     Route: 065
  7. SAXENDA [Concomitant]
     Active Substance: LIRAGLUTIDE
     Route: 065
  8. TIZANIDINE HYDROCHLORIDE [Concomitant]
     Active Substance: TIZANIDINE HYDROCHLORIDE
     Route: 065
  9. MELOXICAM [Concomitant]
     Active Substance: MELOXICAM
     Route: 065
  10. VITAMIN D3 [Concomitant]
     Active Substance: CHOLECALCIFEROL
  11. CALCIUM [Concomitant]
     Active Substance: CALCIUM
     Dosage: UNK
     Route: 065
  12. VITAMINS [Concomitant]
     Active Substance: VITAMINS
     Route: 065
  13. MELOXICAM [Concomitant]
     Active Substance: MELOXICAM
     Route: 065
  14. PREGABALIN [Concomitant]
     Active Substance: PREGABALIN
     Route: 065
  15. Lmx [Concomitant]
  16. LIDOCAINE [Concomitant]
     Active Substance: LIDOCAINE

REACTIONS (7)
  - Pneumonia [Unknown]
  - Gastrointestinal disorder [Unknown]
  - COVID-19 [Unknown]
  - Nasopharyngitis [Unknown]
  - Upper respiratory tract infection [Unknown]
  - Product use in unapproved indication [Unknown]
  - Product dose omission issue [Unknown]

NARRATIVE: CASE EVENT DATE: 20210809
